FAERS Safety Report 7137153-0 (Version None)
Quarter: 2010Q4

REPORT INFORMATION
  Report Type: 
  Country: None (occurrence: None)
  Receive Date: 20101206
  Receipt Date: 20070614
  Transmission Date: 20110411
  Serious: Yes (Death)
  Sender: FDA-Public Use
  Company Number: US-ACTELION-A-US2006-15169

PATIENT

DRUGS (9)
  1. ILOPROST INHALATION SOLUTION 5UG US [Suspect]
     Indication: PULMONARY ARTERIAL HYPERTENSION
     Dosage: 5 UG, 6-9 X DAY
     Route: 055
     Dates: start: 20060415, end: 20070601
  2. TRACLEER [Concomitant]
     Indication: PULMONARY HYPERTENSION
  3. FUROSEMIDE [Concomitant]
  4. ENALAPRIL [Concomitant]
  5. POTASSIUM CHLORIDE [Concomitant]
  6. WARFARIN SODIUM [Concomitant]
  7. SPIRONOLACTONE [Concomitant]
  8. NEXIUM [Concomitant]
  9. SILDENAFIL [Concomitant]

REACTIONS (2)
  - DEATH [None]
  - PRODUCTIVE COUGH [None]
